FAERS Safety Report 10720651 (Version 1)
Quarter: 2015Q1

REPORT INFORMATION
  Report Type: Spontaneous
  Country: RO (occurrence: RO)
  Receive Date: 20150119
  Receipt Date: 20150119
  Transmission Date: 20150721
  Serious: Yes (Death)
  Sender: FDA-Public Use
  Company Number: RO-BEH-2015047835

PATIENT
  Age: 42 Year
  Sex: Female

DRUGS (10)
  1. IV IMMUNOGLOBULINS [Suspect]
     Active Substance: HUMAN IMMUNOGLOBULIN G
     Indication: OVARIAN GERM CELL TERATOMA
     Route: 042
  2. IV IMMUNOGLOBULINS [Suspect]
     Active Substance: HUMAN IMMUNOGLOBULIN G
     Indication: OVARIAN GERM CELL TERATOMA
     Route: 042
  3. METHYLPREDNISOLONE. [Suspect]
     Active Substance: METHYLPREDNISOLONE
     Indication: ENCEPHALITIS AUTOIMMUNE
  4. CLONAZEPAM. [Suspect]
     Active Substance: CLONAZEPAM
  5. CYCLOPHOSPHAMIDE. [Suspect]
     Active Substance: CYCLOPHOSPHAMIDE
     Indication: OVARIAN GERM CELL TERATOMA
  6. LEVETIRACETAM. [Suspect]
     Active Substance: LEVETIRACETAM
  7. PHENHYDAN [Suspect]
     Active Substance: PHENYTOIN
  8. CYCLOPHOSPHAMIDE. [Suspect]
     Active Substance: CYCLOPHOSPHAMIDE
     Indication: ENCEPHALITIS AUTOIMMUNE
  9. ANTIBIOTICS [Suspect]
     Active Substance: UNSPECIFIED INGREDIENT
  10. METHYLPREDNISOLONE. [Suspect]
     Active Substance: METHYLPREDNISOLONE
     Indication: OVARIAN GERM CELL TERATOMA

REACTIONS (5)
  - Drug ineffective for unapproved indication [Fatal]
  - Bronchopneumonia [None]
  - Decerebration [None]
  - Oculogyric crisis [None]
  - Respiratory failure [None]
